FAERS Safety Report 9104340 (Version 6)
Quarter: 2019Q3

REPORT INFORMATION
  Report Type: Spontaneous
  Country: FI (occurrence: FI)
  Receive Date: 20130219
  Receipt Date: 20190719
  Transmission Date: 20191005
  Serious: Yes (Other)
  Sender: FDA-Public Use
  Company Number: FI-UCBSA-078328

PATIENT
  Age: 0 Year
  Sex: Male
  Weight: 2.22 kg

DRUGS (33)
  1. ENOXAPARIN [Suspect]
     Active Substance: ENOXAPARIN
     Indication: HAEMORRHAGE INTRACRANIAL
     Dosage: 60 MILLIGRAM, 2X/DAY (BID)
     Route: 064
  2. ENOXAPARIN [Suspect]
     Active Substance: ENOXAPARIN
     Dosage: UNKNOWN DOSE
     Route: 063
  3. CEFTRIAXONE. [Concomitant]
     Active Substance: CEFTRIAXONE
     Indication: PNEUMONIA
     Dosage: UNKNOWN DOSE
     Route: 064
  4. HYDANTIN [PHENYTOIN] [Concomitant]
     Indication: PRODUCT USED FOR UNKNOWN INDICATION
     Dosage: UNKNOWN DOSE
     Route: 064
     Dates: start: 20120814, end: 20120910
  5. KLEXANE [Concomitant]
     Active Substance: ENOXAPARIN
     Indication: INTRACRANIAL VENOUS SINUS THROMBOSIS
     Dosage: 40 MG, 2X/DAY (BID)
     Route: 064
     Dates: start: 20120729, end: 20130206
  6. LORAZEPAM. [Concomitant]
     Active Substance: LORAZEPAM
     Indication: EPILEPSY
     Dosage: 6 MG
  7. PRO-EPANUTIN [Concomitant]
     Active Substance: FOSPHENYTOIN SODIUM
     Indication: EPILEPSY
     Dosage: 600 MILLIGRAM
     Route: 064
  8. PROPOFOL. [Concomitant]
     Active Substance: PROPOFOL
     Dosage: UNKNOWN DOSE
     Route: 063
  9. TAZOCIN [Concomitant]
     Active Substance: PIPERACILLIN SODIUM\TAZOBACTAM SODIUM
     Indication: PNEUMONIA
     Dosage: UNKNOWN DOSE
     Route: 064
     Dates: end: 20120830
  10. LACOSAMIDE. [Suspect]
     Active Substance: LACOSAMIDE
     Indication: STATUS EPILEPTICUS
     Dosage: 150 MG, 2X/DAY (BID)
     Route: 064
     Dates: start: 201207, end: 201207
  11. FOLVITE [Concomitant]
     Active Substance: FOLIC ACID
     Dosage: 4 MG, ONCE DAILY (QD)
     Route: 063
     Dates: start: 20130206, end: 201302
  12. HEPARIN [Concomitant]
     Active Substance: HEPARIN SODIUM
     Indication: INTRACRANIAL VENOUS SINUS THROMBOSIS
     Dosage: UNKNOWN DOSE
     Route: 064
     Dates: start: 20120728, end: 20120729
  13. MIDAZOLAM [Concomitant]
     Active Substance: MIDAZOLAM HYDROCHLORIDE
     Indication: PRODUCT USED FOR UNKNOWN INDICATION
     Dosage: UNKNOWN DOSE
     Route: 064
  14. SOMAC [Concomitant]
     Active Substance: PANTOPRAZOLE SODIUM
     Indication: PROPHYLAXIS
     Dosage: UNKNOWN DOSE
     Route: 064
     Dates: start: 20120729, end: 20120814
  15. STESOLID [Concomitant]
     Active Substance: DIAZEPAM
     Indication: SEIZURE
     Dosage: 10 MILLIGRAM
     Route: 064
  16. KEPPRA [Suspect]
     Active Substance: LEVETIRACETAM
     Indication: OFF LABEL USE
     Dosage: 3000 MG
     Route: 064
  17. KEPPRA [Suspect]
     Active Substance: LEVETIRACETAM
     Dosage: 1000 MG, 2X/DAY (BID)
     Route: 064
     Dates: start: 20120729
  18. LACOSAMIDE. [Suspect]
     Active Substance: LACOSAMIDE
     Indication: OFF LABEL USE
     Dosage: 100 MG, 2X/DAY (BID)
     Route: 064
     Dates: start: 20120730
  19. ENOXAPARIN [Suspect]
     Active Substance: ENOXAPARIN
     Indication: THROMBOSIS
     Dosage: 40 MG, 2X/DAY (BID)
     Route: 064
     Dates: start: 20120729
  20. ALBETOL [Concomitant]
     Active Substance: LABETALOL HYDROCHLORIDE
     Dosage: 100 MG, 2X/DAY (BID)
     Route: 063
     Dates: start: 20130206, end: 201302
  21. FOLVITE [Concomitant]
     Active Substance: FOLIC ACID
     Indication: HIGH RISK PREGNANCY
     Dosage: 4 MG, ONCE DAILY (QD)
     Route: 064
     Dates: start: 20120816, end: 20130206
  22. LACTOBACILLUS ACIDOPHILUS [Concomitant]
     Active Substance: LACTOBACILLUS ACIDOPHILUS
     Indication: PROPHYLAXIS
     Dosage: UNKNOWN DOSE
     Route: 064
     Dates: start: 20120820, end: 20120824
  23. OBSIDAN [FERROUS GLYCINE SULFATE] [Concomitant]
     Indication: IRON DEFICIENCY ANAEMIA
     Dosage: UNKNOWN DOSE
     Route: 064
     Dates: start: 20120815, end: 20120903
  24. PRO-EPANUTIN [Concomitant]
     Active Substance: FOSPHENYTOIN SODIUM
     Dosage: 250 MG, 2X/DAY (BID)
     Route: 064
     Dates: start: 20120729, end: 20120814
  25. PHENYTOINE [Concomitant]
     Active Substance: PHENYTOIN
     Indication: PRODUCT USED FOR UNKNOWN INDICATION
     Dosage: UNKNOWN DOSE
     Route: 064
  26. KEPPRA [Suspect]
     Active Substance: LEVETIRACETAM
     Indication: STATUS EPILEPTICUS
     Dosage: 1000 MILLIGRAM
     Route: 064
  27. ATIVAN [Concomitant]
     Active Substance: LORAZEPAM
     Indication: PRODUCT USED FOR UNKNOWN INDICATION
     Dosage: UNKNOWN DOSE
     Route: 064
  28. LACOSAMIDE. [Suspect]
     Active Substance: LACOSAMIDE
     Dosage: UNKNOWN DOSE
     Route: 063
  29. PROPOFOL. [Concomitant]
     Active Substance: PROPOFOL
     Indication: PRODUCT USED FOR UNKNOWN INDICATION
     Dosage: UNKNOWN DOSE
     Route: 064
  30. KEPPRA [Suspect]
     Active Substance: LEVETIRACETAM
     Dosage: UNKNOWN DOSE
     Route: 063
  31. ALBETOL [Concomitant]
     Active Substance: LABETALOL HYDROCHLORIDE
     Indication: HYPERTENSION
     Dosage: 100 MG, 2X/DAY (BID)
     Route: 064
     Dates: start: 20120817, end: 20130206
  32. KLEXANE [Concomitant]
     Active Substance: ENOXAPARIN
     Dosage: 40 MG, 2X/DAY (BID)
     Route: 063
     Dates: start: 20130206, end: 201302
  33. AMOXIN COMP [AMOXICILLIN;CLAVULANATE POTASSIUM] [Concomitant]
     Indication: PNEUMONIA
     Dosage: UNKNOWN DOSE
     Route: 064
     Dates: start: 20120820, end: 20120828

REACTIONS (6)
  - Somnolence [Unknown]
  - Exposure via breast milk [Unknown]
  - Premature baby [Recovered/Resolved]
  - Feeding disorder [Unknown]
  - Maternal exposure during pregnancy [Unknown]
  - Off label use [Unknown]

NARRATIVE: CASE EVENT DATE: 201207
